FAERS Safety Report 9295512 (Version 6)
Quarter: 2013Q3

REPORT INFORMATION
  Report Type: Spontaneous
  Country: US (occurrence: US)
  Receive Date: 20130517
  Receipt Date: 20130725
  Transmission Date: 20140515
  Serious: No
  Sender: FDA-Public Use
  Company Number: US-VERTEX PHARMACEUTICALS INC-2013-006099

PATIENT
  Age: 46 Year
  Sex: Female
  Weight: 104 kg

DRUGS (3)
  1. INCIVEK [Suspect]
     Indication: HEPATITIS C
     Dosage: 750 MG, TID
     Route: 048
     Dates: start: 20130514
  2. RIBAVIRIN [Suspect]
     Indication: HEPATITIS C
     Dosage: 600 MG, BID
     Route: 048
     Dates: start: 20130514
  3. PEGASYS [Suspect]
     Indication: HEPATITIS C
     Dosage: 180 ?G, WEEKLY
     Route: 058
     Dates: start: 20130514

REACTIONS (11)
  - Influenza like illness [Recovered/Resolved]
  - Arthralgia [Not Recovered/Not Resolved]
  - Insomnia [Recovered/Resolved]
  - Gait disturbance [Unknown]
  - Chills [Recovered/Resolved]
  - Stomatitis [Not Recovered/Not Resolved]
  - Glossodynia [Not Recovered/Not Resolved]
  - Decreased appetite [Not Recovered/Not Resolved]
  - Fatigue [Recovered/Resolved]
  - Rash pruritic [Recovered/Resolved]
  - Nausea [Not Recovered/Not Resolved]
